FAERS Safety Report 9118398 (Version 1)
Quarter: 2013Q1

REPORT INFORMATION
  Report Type: Spontaneous
  Country: US (occurrence: None)
  Receive Date: 20130221
  Receipt Date: 20130221
  Transmission Date: 20140127
  Serious: Yes (Life-Threatening)
  Sender: FDA-Public Use
  Company Number: None

PATIENT
  Age: 4 Year
  Sex: Male
  Weight: 16.3 kg

DRUGS (8)
  1. LACOSAMIDE [Suspect]
     Dosage: 100MG, 50MG, 100MG TID, PO
     Route: 048
  2. LEVETIRACETAM [Suspect]
     Route: 048
  3. VALPROIC ACID [Concomitant]
  4. TOPIRAMATE [Concomitant]
  5. RUFINAMIDE [Concomitant]
  6. CLOBAZAM [Concomitant]
  7. LACOSAMIDE [Concomitant]
  8. KETOGENIC DIET [Concomitant]

REACTIONS (2)
  - Ventricular tachycardia [None]
  - Cardiac arrest [None]
